FAERS Safety Report 20369936 (Version 1)
Quarter: 2022Q1

REPORT INFORMATION
  Report Type: Spontaneous
  Country: DE (occurrence: None)
  Receive Date: 20220124
  Receipt Date: 20220124
  Transmission Date: 20220423
  Serious: Yes (Hospitalization, Other)
  Sender: FDA-Public Use
  Company Number: 2022A028055

PATIENT
  Age: 67 Year
  Sex: Male
  Weight: 112 kg

DRUGS (12)
  1. DAPAGLIFLOZIN [Suspect]
     Active Substance: DAPAGLIFLOZIN
     Route: 048
  2. CANDESARTAN [Concomitant]
     Active Substance: CANDESARTAN
  3. LERCANIDIPINE [Concomitant]
     Active Substance: LERCANIDIPINE
  4. TORSEMIDE [Concomitant]
     Active Substance: TORSEMIDE
  5. HYDROMORPHONE  RETARD [Concomitant]
  6. NOVAMINSULFONE [Concomitant]
  7. PREGABALIN [Concomitant]
     Active Substance: PREGABALIN
  8. PANTOPRAZOLE [Concomitant]
     Active Substance: PANTOPRAZOLE
  9. ATORVASTATIN / EZETIMIBE [Concomitant]
     Dosage: 40 / 10MG AT MORNING
  10. BISOPROLOL [Concomitant]
     Active Substance: BISOPROLOL
     Dosage: 2.5 MG AT MORNING
  11. SEMAGLUTIDE [Concomitant]
     Active Substance: SEMAGLUTIDE
     Dosage: 0.5 MG 1X WEEKLY SUBCUTANEOUS
  12. ICT WITH INSULIN GLARGINE AND INSULIN ASPART [Concomitant]
     Dosage: (DAILY DOSE APPROX. 80 IU / DAY)

REACTIONS (3)
  - Cardiac failure [Unknown]
  - Dyspnoea at rest [Unknown]
  - Atrial fibrillation [Unknown]
